FAERS Safety Report 7335703-2 (Version None)
Quarter: 2011Q1

REPORT INFORMATION
  Report Type: 
  Country: None (occurrence: None)
  Receive Date: 20110307
  Receipt Date: 20110301
  Transmission Date: 20110831
  Serious: Yes (Death)
  Sender: FDA-Public Use
  Company Number: A0916616A

PATIENT
  Age: 95 Year
  Sex: Male

DRUGS (1)
  1. PROMACTA [Suspect]
     Indication: MYELODYSPLASTIC SYNDROME
     Dosage: 75MG PER DAY
     Route: 048
     Dates: start: 20100326, end: 20101119

REACTIONS (1)
  - CARDIAC ARREST [None]
